FAERS Safety Report 4891975-5 (Version None)
Quarter: 2006Q1

REPORT INFORMATION
  Report Type: 
  Country: None (occurrence: None)
  Receive Date: 20060123
  Receipt Date: 20060113
  Transmission Date: 20060701
  Serious: Yes (Other)
  Sender: FDA-Public Use
  Company Number: GXKR2006GB00477

PATIENT
  Age: 37 Year
  Sex: Female
  Weight: 76.2 kg

DRUGS (5)
  1. PHENOXYMETHYLPENICILLIN (= PENICILLIN V) (NGX) (PHENOXYMETHYLPENICILLI [Suspect]
     Indication: RASH
     Dates: start: 19920101, end: 19920101
  2. FLOXACILLIN SODIUM [Suspect]
  3. ERYTHROMYCIN [Suspect]
  4. CETIRIZINE (NGX)(CETIRIZINE) [Suspect]
     Indication: SWELLING
     Dosage: 1 DAILY
     Dates: start: 20050901, end: 20050901
  5. SUPRAX(CEFIXIME TRIHYDRATE) [Suspect]

REACTIONS (4)
  - FEELING HOT AND COLD [None]
  - RASH [None]
  - SKIN EXFOLIATION [None]
  - SWELLING [None]
